FAERS Safety Report 13893294 (Version 1)
Quarter: 2017Q3

REPORT INFORMATION
  Report Type: Spontaneous
  Country: US (occurrence: US)
  Receive Date: 20170822
  Receipt Date: 20170822
  Transmission Date: 20171127
  Serious: Yes (Hospitalization)
  Sender: FDA-Public Use
  Company Number: US-ROCHE-1198417

PATIENT
  Sex: Female

DRUGS (4)
  1. XELODA [Suspect]
     Active Substance: CAPECITABINE
     Indication: BREAST CANCER METASTATIC
     Route: 065
     Dates: start: 201004
  2. ANTI-SEIZURE MEDICATION (UNK INGREDIENTS) [Concomitant]
     Indication: SEIZURE
     Route: 065
  3. TYKERB [Concomitant]
     Active Substance: LAPATINIB DITOSYLATE
     Indication: BREAST CANCER METASTATIC
     Route: 065
  4. HERCEPTIN [Suspect]
     Active Substance: TRASTUZUMAB
     Indication: BREAST CANCER METASTATIC
     Route: 065
     Dates: start: 201004

REACTIONS (7)
  - Dry mouth [Unknown]
  - Contusion [Unknown]
  - Stomatitis [Unknown]
  - Feeding disorder [Unknown]
  - Diarrhoea [Unknown]
  - Metastases to central nervous system [Unknown]
  - Insomnia [Unknown]
